FAERS Safety Report 17259786 (Version 2)
Quarter: 2025Q3

REPORT INFORMATION
  Report Type: Spontaneous
  Country: EU (occurrence: EU)
  Receive Date: 20200110
  Receipt Date: 20250719
  Transmission Date: 20251020
  Serious: Yes (Other)
  Sender: AUROBINDO
  Company Number: EU-TEVA-2019-PL-1162889

PATIENT
  Age: 34 Year
  Sex: Male

DRUGS (2)
  1. SIMVASTATIN [Suspect]
     Active Substance: SIMVASTATIN
     Indication: Xanthomatosis
     Route: 065
  2. CHENODIOL [Suspect]
     Active Substance: CHENODIOL
     Indication: Xanthomatosis
     Route: 065

REACTIONS (1)
  - Treatment failure [Unknown]
